FAERS Safety Report 16051031 (Version 1)
Quarter: 2019Q1

REPORT INFORMATION
  Report Type: Spontaneous
  Country: IT (occurrence: IT)
  Receive Date: 20190308
  Receipt Date: 20190308
  Transmission Date: 20190418
  Serious: Yes (Other)
  Sender: FDA-Public Use
  Company Number: IT-AUROBINDO-AUR-APL-2019-011860

PATIENT

DRUGS (1)
  1. BUPIVACAINE. [Suspect]
     Active Substance: BUPIVACAINE
     Indication: COMPUTERISED TOMOGRAM
     Dosage: UNK
     Route: 065

REACTIONS (1)
  - Drug effect decreased [Recovered/Resolved]

NARRATIVE: CASE EVENT DATE: 20180324
